FAERS Safety Report 6754499-6 (Version None)
Quarter: 2010Q2

REPORT INFORMATION
  Report Type: 
  Country: None (occurrence: None)
  Receive Date: 20100603
  Receipt Date: 20100521
  Transmission Date: 20101027
  Serious: Yes (Hospitalization)
  Sender: FDA-Public Use
  Company Number: GB-MYLANLABS-2010S1009011

PATIENT
  Age: 44 Year
  Sex: Male
  Weight: 43 kg

DRUGS (9)
  1. LAMOTRIGINE [Suspect]
     Indication: MOOD SWINGS
     Route: 048
     Dates: start: 20100427, end: 20100513
  2. AMISULPRIDE [Concomitant]
     Indication: DRUG USE FOR UNKNOWN INDICATION
  3. CITALOPRAM [Concomitant]
     Indication: DRUG USE FOR UNKNOWN INDICATION
  4. CLOZAPINE [Concomitant]
     Indication: DRUG USE FOR UNKNOWN INDICATION
  5. COD LIVER OIL [Concomitant]
     Indication: DRUG USE FOR UNKNOWN INDICATION
  6. HYOSCINE HBR HYT [Concomitant]
     Indication: DRUG USE FOR UNKNOWN INDICATION
  7. SALBUTAMOL [Concomitant]
     Indication: DRUG USE FOR UNKNOWN INDICATION
  8. SIMVASTATIN [Concomitant]
     Indication: DRUG USE FOR UNKNOWN INDICATION
  9. VALPROATE SODIUM [Concomitant]
     Indication: DRUG USE FOR UNKNOWN INDICATION

REACTIONS (7)
  - CONFUSIONAL STATE [None]
  - PYREXIA [None]
  - RASH GENERALISED [None]
  - SOMNOLENCE [None]
  - SPUTUM DISCOLOURED [None]
  - TACHYCARDIA [None]
  - VOMITING [None]
